FAERS Safety Report 4975146-X (Version None)
Quarter: 2006Q2

REPORT INFORMATION
  Report Type: 
  Country: None (occurrence: None)
  Receive Date: 20060414
  Receipt Date: 20060414
  Transmission Date: 20061013
  Serious: Yes (Death)
  Sender: FDA-Public Use
  Company Number: None

PATIENT
  Sex: Female
  Weight: 45 kg

DRUGS (1)
  1. THALIDOMIDE [Suspect]
     Dosage: PO QD 200MG X 14, 400MG X 14 , 600MG X 14 + 8 DAYS 800MG
     Route: 048

REACTIONS (1)
  - OBSTRUCTION [None]
